FAERS Safety Report 20081772 (Version 4)
Quarter: 2022Q1

REPORT INFORMATION
  Report Type: Spontaneous
  Country: US (occurrence: US)
  Receive Date: 20211117
  Receipt Date: 20220215
  Transmission Date: 20220424
  Serious: Yes (Other)
  Sender: FDA-Public Use
  Company Number: US-PFIZER INC-202101466853

PATIENT
  Age: 69 Year
  Sex: Female
  Weight: 95.71 kg

DRUGS (3)
  1. GENOTROPIN [Suspect]
     Active Substance: SOMATROPIN
     Indication: Pituitary tumour
     Dosage: 0.4 MG, DAILY
  2. GENOTROPIN [Suspect]
     Active Substance: SOMATROPIN
     Indication: Pituitary tumour benign
     Dosage: UNK (4, CALLER DOESN^T REMEMBER UNITS ON THE 4 DOSE)
  3. GENOTROPIN [Suspect]
     Active Substance: SOMATROPIN
     Indication: Empty sella syndrome

REACTIONS (9)
  - Paralysis [Unknown]
  - Product dose omission issue [Unknown]
  - Off label use [Unknown]
  - Product supply issue [Unknown]
  - Feeling abnormal [Unknown]
  - Illness [Unknown]
  - Loss of personal independence in daily activities [Unknown]
  - Diarrhoea [Unknown]
  - Malaise [Unknown]

NARRATIVE: CASE EVENT DATE: 20210401
